FAERS Safety Report 26115091 (Version 1)
Quarter: 2025Q4

REPORT INFORMATION
  Report Type: Spontaneous
  Country: EU (occurrence: EU)
  Receive Date: 20251203
  Receipt Date: 20251203
  Transmission Date: 20260117
  Serious: Yes (Other)
  Sender: ABBVIE
  Company Number: EU-FERRINGPH-2025FE07093

PATIENT
  Age: 32 Year
  Sex: Male

DRUGS (3)
  1. ASACOL [Suspect]
     Active Substance: MESALAMINE
     Indication: Colitis ulcerative
     Route: 048
     Dates: start: 2025, end: 2025
  2. PENTASA [Suspect]
     Active Substance: MESALAMINE
     Indication: Colitis ulcerative
     Dosage: LAST ADMIN DATE: 2025
     Route: 048
     Dates: start: 202506
  3. MESALAMINE [Suspect]
     Active Substance: MESALAMINE
     Indication: Colitis ulcerative
     Route: 048
     Dates: start: 2025, end: 2025

REACTIONS (1)
  - Myopericarditis [Recovered/Resolved]

NARRATIVE: CASE EVENT DATE: 20250601
